FAERS Safety Report 9027584 (Version 1)
Quarter: 2013Q1

REPORT INFORMATION
  Report Type: Spontaneous
  Country: US (occurrence: US)
  Receive Date: 20130124
  Receipt Date: 20130124
  Transmission Date: 20140127
  Serious: No
  Sender: FDA-Public Use
  Company Number: US-BIOGENIDEC-2013BI005673

PATIENT
  Sex: Female

DRUGS (2)
  1. TYSABRI [Suspect]
     Indication: MULTIPLE SCLEROSIS
     Route: 042
     Dates: start: 20091102, end: 20120307
  2. COPAXONE [Concomitant]

REACTIONS (6)
  - Pain [Not Recovered/Not Resolved]
  - Depression suicidal [Unknown]
  - Feeling hot [Unknown]
  - Post-traumatic pain [Recovered/Resolved]
  - Road traffic accident [Recovered/Resolved]
  - Malaise [Unknown]
